FAERS Safety Report 7471526-1 (Version None)
Quarter: 2011Q2

REPORT INFORMATION
  Report Type: 
  Country: None (occurrence: None)
  Receive Date: 20110502
  Receipt Date: 20110418
  Transmission Date: 20111010
  Serious: Yes (Other)
  Sender: FDA-Public Use
  Company Number: PHHY2011KR34404

PATIENT
  Age: 69 Year

DRUGS (2)
  1. VISUDYNE [Suspect]
     Indication: CORNEAL NEOVASCULARISATION
  2. VISUDYNE [Suspect]
     Indication: PROPHYLAXIS AGAINST TRANSPLANT REJECTION

REACTIONS (2)
  - KERATITIS HERPETIC [None]
  - KERATOPLASTY [None]
